FAERS Safety Report 13667802 (Version 1)
Quarter: 2017Q2

REPORT INFORMATION
  Report Type: Spontaneous
  Country: US (occurrence: US)
  Receive Date: 20170620
  Receipt Date: 20170620
  Transmission Date: 20170830
  Serious: Yes (Hospitalization)
  Sender: FDA-Public Use
  Company Number: US-ACCORD-052683

PATIENT
  Age: 23 Year
  Sex: Male

DRUGS (3)
  1. REMIFENTANIL/REMIFENTANIL HYDROCHLORIDE [Concomitant]
     Indication: GENERAL ANAESTHESIA
     Dosage: REMIFENTANIL DRIP
  2. DEXMEDETOMIDINE. [Suspect]
     Active Substance: DEXMEDETOMIDINE
     Indication: SEDATION
     Dosage: PATIENT INITIALLY RECEIVED 1 MCG/KG FOR 10 MINUTES AS A LOADING DOSE
  3. PROPOFOL. [Concomitant]
     Active Substance: PROPOFOL
     Indication: GENERAL ANAESTHESIA
     Dosage: PROPOFOL DRIP AT 100 MCG/KG/MINUTE

REACTIONS (1)
  - Polyuria [Recovered/Resolved]
